FAERS Safety Report 4546230-X (Version None)
Quarter: 2005Q1

REPORT INFORMATION
  Report Type: 
  Country: None (occurrence: None)
  Receive Date: 20050103
  Receipt Date: 20041221
  Transmission Date: 20050727
  Serious: No
  Sender: FDA-Public Use
  Company Number: 2004UW26012

PATIENT
  Sex: Male

DRUGS (3)
  1. CRESTOR [Suspect]
     Dates: start: 20040301
  2. TRICOR [Suspect]
     Dates: start: 20041008
  3. PRAVACHOL [Concomitant]

REACTIONS (2)
  - INFLUENZA [None]
  - RHABDOMYOLYSIS [None]
